FAERS Safety Report 5391371-0 (Version None)
Quarter: 2007Q3

REPORT INFORMATION
  Report Type: 
  Country: None (occurrence: None)
  Receive Date: 20070716
  Receipt Date: 20070716
  Transmission Date: 20080115
  Serious: No
  Sender: FDA-Public Use
  Company Number: None

PATIENT
  Age: 52 Year
  Sex: Female

DRUGS (1)
  1. EFFEXOR XR [Suspect]
     Dosage: CAPSULE, EXTENDED RELEASE

REACTIONS (2)
  - INCORRECT DOSE ADMINISTERED [None]
  - INTERCEPTED DRUG DISPENSING ERROR [None]
